FAERS Safety Report 25840785 (Version 1)
Quarter: 2025Q3

REPORT INFORMATION
  Report Type: Other
  Country: US (occurrence: US)
  Receive Date: 20250924
  Receipt Date: 20250924
  Transmission Date: 20251020
  Serious: Yes (Hospitalization, Other)
  Sender: APPCO PHARMA LLC
  Company Number: US-Appco Pharma LLC-2185190

PATIENT
  Age: 56 Year
  Sex: Female

DRUGS (4)
  1. HALOPERIDOL [Suspect]
     Active Substance: HALOPERIDOL
     Indication: Product used for unknown indication
  2. PALIPERIDONE [Suspect]
     Active Substance: PALIPERIDONE
  3. DULOXETINE [Concomitant]
     Active Substance: DULOXETINE
  4. DIVALPROEX SODIUM [Concomitant]
     Active Substance: DIVALPROEX SODIUM

REACTIONS (2)
  - Wrong product administered [Unknown]
  - Neuroleptic malignant syndrome [Recovered/Resolved]
